FAERS Safety Report 5430575-5 (Version None)
Quarter: 2007Q3

REPORT INFORMATION
  Report Type: 
  Country: None (occurrence: None)
  Receive Date: 20070830
  Receipt Date: 20070823
  Transmission Date: 20080115
  Serious: Yes (Other)
  Sender: FDA-Public Use
  Company Number: A0667362A

PATIENT
  Age: 62 Year
  Sex: Female

DRUGS (21)
  1. WELLBUTRIN XL [Suspect]
     Dosage: 150MG PER DAY
     Route: 048
     Dates: start: 20060403, end: 20060407
  2. PLAVIX [Concomitant]
  3. METFORMIN [Concomitant]
  4. TRICOR [Concomitant]
  5. POTASSIUM CHLORIDE [Concomitant]
  6. GLUCOPHAGE [Concomitant]
  7. CLARINEX [Concomitant]
  8. ECOTRIN [Concomitant]
  9. ALBUTEROL [Concomitant]
  10. AVANDIA [Concomitant]
  11. METOPROLOL SUCCINATE [Concomitant]
  12. CAPTOPRIL [Concomitant]
  13. THEOPHYLLINE [Concomitant]
  14. MOBIC [Concomitant]
  15. OCUVITE [Concomitant]
  16. SENOKOT [Concomitant]
  17. IMDUR [Concomitant]
  18. OSCAL [Concomitant]
  19. BUSPAR [Concomitant]
  20. PREVACID [Concomitant]
  21. ZANAFLEX [Concomitant]

REACTIONS (2)
  - ABNORMAL DREAMS [None]
  - HALLUCINATION [None]
